FAERS Safety Report 23452463 (Version 1)
Quarter: 2024Q1

REPORT INFORMATION
  Report Type: Spontaneous
  Country: US (occurrence: None)
  Receive Date: 20240128
  Receipt Date: 20240128
  Transmission Date: 20240410
  Serious: Yes (Disabling)
  Sender: FDA-Public Use
  Company Number: None

PATIENT
  Age: 43 Year
  Sex: Female
  Weight: 74.25 kg

DRUGS (4)
  1. RINVOQ [Suspect]
     Active Substance: UPADACITINIB
     Indication: Crohn^s disease
     Dosage: OTHER QUANTITY : 1 TABLET(S);?FREQUENCY : DAILY;?
     Route: 048
     Dates: start: 20231201, end: 20240108
  2. LANSOPRAZOLE [Concomitant]
  3. Excerdrin [Concomitant]
  4. BIOTIN [Concomitant]

REACTIONS (53)
  - Arthralgia [None]
  - Headache [None]
  - Tremor [None]
  - Palpitations [None]
  - Drooling [None]
  - Asthenia [None]
  - Tinnitus [None]
  - Fatigue [None]
  - Insomnia [None]
  - Restlessness [None]
  - Dry eye [None]
  - Tachyphrenia [None]
  - Chapped lips [None]
  - Nervousness [None]
  - Intrusive thoughts [None]
  - Obsessive thoughts [None]
  - Fear [None]
  - Paranoia [None]
  - Choking [None]
  - Acne [None]
  - Hunger [None]
  - Weight increased [None]
  - Sleep terror [None]
  - Trismus [None]
  - Neuropathy peripheral [None]
  - Schizophrenia [None]
  - Dementia Alzheimer^s type [None]
  - Parkinson^s disease [None]
  - Brain fog [None]
  - Mental impairment [None]
  - Paraesthesia [None]
  - Bone pain [None]
  - Balance disorder [None]
  - Respiratory rate increased [None]
  - Eye movement disorder [None]
  - Hypersensitivity [None]
  - Thinking abnormal [None]
  - Disturbance in attention [None]
  - Malaise [None]
  - Middle insomnia [None]
  - Dehydration [None]
  - Angina pectoris [None]
  - Axillary pain [None]
  - Dyspnoea [None]
  - Tremor [None]
  - Renal pain [None]
  - Blood pressure increased [None]
  - Photopsia [None]
  - Loss of personal independence in daily activities [None]
  - Dyspnoea [None]
  - Dyspepsia [None]
  - Myalgia [None]
  - Feeling abnormal [None]

NARRATIVE: CASE EVENT DATE: 20240101
